FAERS Safety Report 21797914 (Version 3)
Quarter: 2023Q1

REPORT INFORMATION
  Report Type: Spontaneous
  Country: ES (occurrence: ES)
  Receive Date: 20221230
  Receipt Date: 20230103
  Transmission Date: 20230418
  Serious: Yes (Other)
  Sender: FDA-Public Use
  Company Number: ES-009507513-2212ESP010136

PATIENT
  Age: 55 Year

DRUGS (3)
  1. PEMBROLIZUMAB [Suspect]
     Active Substance: PEMBROLIZUMAB
     Indication: Squamous cell carcinoma of the oral cavity
     Dosage: 200 MILLIGRAM, Q3W
     Route: 042
  2. CARBOPLATIN [Suspect]
     Active Substance: CARBOPLATIN
     Indication: Squamous cell carcinoma of the oral cavity
     Dosage: INITIAL DOSE 337MG/D (MEAN DOSE 216 MG/M2), Q3W
  3. PACLITAXEL [Suspect]
     Active Substance: PACLITAXEL
     Indication: Squamous cell carcinoma of the oral cavity
     Dosage: INITIAL DOSE 150 MG/M2 (MEAN DOSE 124 MG/M2), Q3W

REACTIONS (7)
  - Neuropathy peripheral [Unknown]
  - Neutropenia [Unknown]
  - Thrombocytopenia [Unknown]
  - Asthenia [Unknown]
  - Decreased appetite [Unknown]
  - Alopecia [Unknown]
  - Off label use [Unknown]
